FAERS Safety Report 25445578 (Version 1)
Quarter: 2025Q2

REPORT INFORMATION
  Report Type: Spontaneous
  Country: US (occurrence: None)
  Receive Date: 20250617
  Receipt Date: 20250617
  Transmission Date: 20250717
  Serious: Yes (Hospitalization)
  Sender: FDA-CTU
  Company Number: None

PATIENT
  Age: 77 Year
  Sex: Female
  Weight: 87.6 kg

DRUGS (22)
  1. JELMYTO [Suspect]
     Active Substance: MITOMYCIN
     Indication: Transitional cell carcinoma
     Route: 050
     Dates: start: 20250226, end: 20250402
  2. SERTRALINE [Concomitant]
     Active Substance: SERTRALINE HYDROCHLORIDE
  3. ASPIRIN [Concomitant]
     Active Substance: ASPIRIN
  4. FARXIGA [Concomitant]
     Active Substance: DAPAGLIFLOZIN PROPANEDIOL
  5. FERROUS SULFATE [Concomitant]
     Active Substance: FERROUS SULFATE
  6. ACETAMINOPHEN [Concomitant]
     Active Substance: ACETAMINOPHEN
  7. OMEPRAZOLE [Concomitant]
     Active Substance: OMEPRAZOLE
  8. CARVEDILOL [Concomitant]
     Active Substance: CARVEDILOL
  9. BETAMETHASONE [Concomitant]
     Active Substance: BETAMETHASONE
  10. Fursosemide [Concomitant]
  11. NITROGLYCERIN [Concomitant]
     Active Substance: NITROGLYCERIN
  12. ATORVASTATIN [Concomitant]
     Active Substance: ATORVASTATIN
  13. MYRBETRIQ [Concomitant]
     Active Substance: MIRABEGRON
  14. GABAPENTIN [Concomitant]
     Active Substance: GABAPENTIN
  15. SCOPOLAMINE [Concomitant]
     Active Substance: SCOPOLAMINE
  16. MECLIZINE [Concomitant]
     Active Substance: MECLIZINE HYDROCHLORIDE
  17. CLOPIDOGREL [Concomitant]
     Active Substance: CLOPIDOGREL BISULFATE
  18. ENTRESTO [Concomitant]
     Active Substance: SACUBITRIL\VALSARTAN
  19. DRAMAMINE [Concomitant]
     Active Substance: DIMENHYDRINATE
  20. Bisocodyl [Concomitant]
  21. NYSTATIN [Concomitant]
     Active Substance: NYSTATIN
  22. LANTUS [Concomitant]
     Active Substance: INSULIN GLARGINE

REACTIONS (3)
  - Haemorrhage urinary tract [None]
  - Haemoglobin decreased [None]
  - Haematocrit decreased [None]

NARRATIVE: CASE EVENT DATE: 20250328
